FAERS Safety Report 8410801 (Version 2)
Quarter: 2013Q2

REPORT INFORMATION
  Report Type: Spontaneous
  Country: US (occurrence: None)
  Receive Date: 20111227
  Receipt Date: 20120426
  Transmission Date: 20140414
  Serious: No
  Sender: FDA-Public Use
  Company Number: PHEH2011US07429

PATIENT
  Age: 32 Year
  Sex: Female

DRUGS (1)
  1. GILENYA [Suspect]
     Indication: MULTIPLE SCLEROSIS
     Dosage: 0.5 MG, QD, ORAL
     Route: 048
     Dates: start: 20111005

REACTIONS (12)
  - FATIGUE [None]
  - CHILLS [None]
  - NAUSEA [None]
  - PAIN [None]
  - Multiple sclerosis relapse [None]
  - Mania [None]
  - Gait disturbance [None]
  - Hemiparesis [None]
  - Muscle spasticity [None]
  - Hypertonia [None]
  - Nystagmus [None]
  - Extensor plantar response [None]
